FAERS Safety Report 4881315-X (Version None)
Quarter: 2005Q4

REPORT INFORMATION
  Report Type: 
  Country: None (occurrence: None)
  Receive Date: 20051212
  Receipt Date: 20050908
  Transmission Date: 20060501
  Serious: Yes (Other)
  Sender: FDA-Public Use
  Company Number: 2005-01916

PATIENT
  Age: 52 Year
  Sex: Male
  Weight: 136.1 kg

DRUGS (5)
  1. VELCADE [Suspect]
     Indication: MULTIPLE MYELOMA
     Dates: start: 20050719
  2. LANTUS [Concomitant]
  3. FUROSEMIDE [Concomitant]
  4. NOVOLOG [Concomitant]
  5. MORPHINE [Concomitant]

REACTIONS (2)
  - BACK PAIN [None]
  - MUSCULOSKELETAL STIFFNESS [None]
